FAERS Safety Report 24838519 (Version 13)
Quarter: 2025Q4

REPORT INFORMATION
  Report Type: Report from Study
  Country: None (occurrence: EU)
  Receive Date: 20250113
  Receipt Date: 20251021
  Transmission Date: 20260118
  Serious: Yes (Hospitalization, Other)
  Sender: ALNYLAM PHARMACEUTICALS
  Company Number: EU-ALNYLAM PHARMACEUTICALS, INC.-ALN-2025-000106

PATIENT
  Age: 56 Year
  Weight: 58 kg

DRUGS (3)
  1. AMVUTTRA [Suspect]
     Active Substance: VUTRISIRAN
     Indication: Hereditary neuropathic amyloidosis
     Dosage: 25 MILLIGRAM, Q3M
  2. AMVUTTRA [Suspect]
     Active Substance: VUTRISIRAN
     Dosage: 25 MILLIGRAM, Q3M
  3. VITAMIN A [Concomitant]
     Active Substance: VITAMIN A
     Indication: Familial amyloidosis
     Dosage: UNK, QD

REACTIONS (18)
  - Tibia fracture [Not Recovered/Not Resolved]
  - Cystitis bacterial [Not Recovered/Not Resolved]
  - Fall [Not Recovered/Not Resolved]
  - Pain [Not Recovered/Not Resolved]
  - Liver function test increased [Recovering/Resolving]
  - Renal function test abnormal [Recovering/Resolving]
  - Encephalitis [Recovering/Resolving]
  - Medical induction of coma [Recovering/Resolving]
  - Dehydration [Recovering/Resolving]
  - Seizure [Not Recovered/Not Resolved]
  - Intentional dose omission [Unknown]
  - Asthenia [Not Recovered/Not Resolved]
  - Gait disturbance [Not Recovered/Not Resolved]
  - Dizziness [Not Recovered/Not Resolved]
  - Weight decreased [Not Recovered/Not Resolved]
  - Hypersomnia [Not Recovered/Not Resolved]
  - Therapeutic response shortened [Unknown]
  - Intentional dose omission [Unknown]
